FAERS Safety Report 23086174 (Version 1)
Quarter: 2023Q4

REPORT INFORMATION
  Report Type: Report from Study
  Country: US (occurrence: US)
  Receive Date: 20231019
  Receipt Date: 20231019
  Transmission Date: 20240110
  Serious: Yes (Other)
  Sender: FDA-Public Use
  Company Number: US-JAZZ PHARMACEUTICALS-2023-US-011649

PATIENT
  Age: 47 Year
  Sex: Female

DRUGS (11)
  1. SODIUM OXYBATE [Suspect]
     Active Substance: SODIUM OXYBATE
     Indication: Narcolepsy
     Dosage: UNK
     Route: 048
     Dates: start: 20230527, end: 20230531
  2. SODIUM OXYBATE [Suspect]
     Active Substance: SODIUM OXYBATE
     Indication: Cataplexy
     Dosage: 3 GRAM, BID
  3. SODIUM OXYBATE [Suspect]
     Active Substance: SODIUM OXYBATE
     Indication: Somnolence
  4. TOPIRAMATE [Interacting]
     Active Substance: TOPIRAMATE
     Indication: Product used for unknown indication
     Dosage: 0000
     Dates: start: 20200211
  5. SRONYX [Concomitant]
     Active Substance: ETHINYL ESTRADIOL\LEVONORGESTREL
     Indication: Product used for unknown indication
     Dosage: 0000
     Dates: start: 20210318
  6. MELATONIN [Concomitant]
     Active Substance: MELATONIN
     Indication: Product used for unknown indication
     Dosage: 0000
     Dates: start: 20220916
  7. MODAFINIL [Concomitant]
     Active Substance: MODAFINIL
     Indication: Product used for unknown indication
     Dosage: 0000
     Dates: start: 20221101
  8. COMBIGAN [Concomitant]
     Active Substance: BRIMONIDINE TARTRATE\TIMOLOL MALEATE
     Dosage: 0.2%-0.5% EYE DROPS
     Dates: start: 20220101
  9. IPRATROPIUM BR [Concomitant]
     Dosage: 0.02% SOLN
     Dates: start: 20220901
  10. SERTRALINE HYDROCHLORIDE [Concomitant]
     Active Substance: SERTRALINE HYDROCHLORIDE
     Dosage: UNK
     Dates: start: 20230801
  11. ARTIFICIAL TEARS [PROPYLENE GLYCOL] [Concomitant]
     Dosage: UNK
     Dates: start: 20230719

REACTIONS (16)
  - Kidney infection [Not Recovered/Not Resolved]
  - Temporomandibular joint syndrome [Unknown]
  - Myalgia [Unknown]
  - Migraine [Unknown]
  - Disorientation [Unknown]
  - Pyrexia [Unknown]
  - Chills [Unknown]
  - Vomiting [Unknown]
  - Musculoskeletal stiffness [Unknown]
  - Nervous system disorder [Unknown]
  - Photorefractive keratectomy [Not Recovered/Not Resolved]
  - Drug intolerance [Unknown]
  - Retching [Unknown]
  - Brain fog [Unknown]
  - Gastrointestinal disorder [Unknown]
  - Hyperhidrosis [Unknown]

NARRATIVE: CASE EVENT DATE: 20230528
